FAERS Safety Report 6934826-7 (Version None)
Quarter: 2010Q3

REPORT INFORMATION
  Report Type: 
  Country: None (occurrence: None)
  Receive Date: 20100820
  Receipt Date: 20100806
  Transmission Date: 20110219
  Serious: Yes (Hospitalization, Other)
  Sender: FDA-Public Use
  Company Number: PHHY2010JP45216

PATIENT
  Age: 72 Year
  Sex: Male

DRUGS (4)
  1. NEORAL [Suspect]
     Indication: HENOCH-SCHONLEIN PURPURA
     Dosage: 50 MG, BID
     Route: 048
     Dates: start: 20100628, end: 20100708
  2. NEORAL [Suspect]
     Indication: GLOMERULONEPHRITIS
  3. NEORAL [Suspect]
     Indication: VASCULITIS
  4. CRESTOR [Concomitant]
     Route: 048

REACTIONS (4)
  - BLOOD CREATININE INCREASED [None]
  - BLOOD UREA INCREASED [None]
  - GLOMERULONEPHRITIS RAPIDLY PROGRESSIVE [None]
  - RENAL IMPAIRMENT [None]
